FAERS Safety Report 11107842 (Version 1)
Quarter: 2015Q2

REPORT INFORMATION
  Report Type: Report from Study
  Country: CZ (occurrence: CZ)
  Receive Date: 20150512
  Receipt Date: 20150512
  Transmission Date: 20150821
  Serious: Yes (Other)
  Sender: FDA-Public Use
  Company Number: PHHY2015CZ054178

PATIENT
  Age: 67 Year
  Sex: Female

DRUGS (1)
  1. AFINITOR [Suspect]
     Active Substance: EVEROLIMUS
     Indication: BREAST CANCER
     Dosage: 10 MG, QD
     Route: 065
     Dates: start: 20150116, end: 20150325

REACTIONS (3)
  - Osteitis [Recovering/Resolving]
  - Stomatitis [Recovering/Resolving]
  - Dental discomfort [Recovering/Resolving]

NARRATIVE: CASE EVENT DATE: 20150325
